FAERS Safety Report 21464760 (Version 2)
Quarter: 2022Q4

REPORT INFORMATION
  Report Type: Spontaneous
  Country: IT (occurrence: IT)
  Receive Date: 20221017
  Receipt Date: 20221029
  Transmission Date: 20230112
  Serious: Yes (Hospitalization, Other)
  Sender: FDA-Public Use
  Company Number: IT-Accord-282105

PATIENT
  Age: 30 Year
  Sex: Male

DRUGS (8)
  1. CLONAZEPAM [Suspect]
     Active Substance: CLONAZEPAM
     Indication: Antipsychotic therapy
     Dosage: 4 MG/DAY
  2. CLOZAPINE [Suspect]
     Active Substance: CLOZAPINE
     Indication: Antipsychotic therapy
     Dosage: FROM 125 MG/DAY DOSE WAS REDUCED TO 50 MG/DAY
  3. CLOTHIAPINE [Suspect]
     Active Substance: CLOTHIAPINE
     Indication: Antipsychotic therapy
     Dosage: 90 MG/DAY
  4. VALPROATE SODIUM [Suspect]
     Active Substance: VALPROATE SODIUM
     Indication: Antipsychotic therapy
     Dosage: 1500 MG/DAY
  5. AMISULPRIDE [Suspect]
     Active Substance: AMISULPRIDE
     Indication: Antipsychotic therapy
     Dosage: 600 MG/DAY
  6. CHLORPROMAZINE [Suspect]
     Active Substance: CHLORPROMAZINE
     Indication: Antipsychotic therapy
     Dosage: 150 MG/DAY
  7. CLOZAPINE [Suspect]
     Active Substance: CLOZAPINE
     Indication: Antipsychotic therapy
  8. CLOTHIAPINE [Suspect]
     Active Substance: CLOTHIAPINE
     Indication: Antipsychotic therapy
     Dosage: 100 MG

REACTIONS (1)
  - Priapism [Recovered/Resolved]
